FAERS Safety Report 7890950-6 (Version None)
Quarter: 2011Q4

REPORT INFORMATION
  Report Type: 
  Country: None (occurrence: None)
  Receive Date: 20111103
  Receipt Date: 20110727
  Transmission Date: 20120403
  Serious: No
  Sender: FDA-Public Use
  Company Number: US-AMGEN-USASP2011038230

PATIENT
  Age: 69 Year
  Sex: Female
  Weight: 95.238 kg

DRUGS (11)
  1. CENTRUM                            /00554501/ [Concomitant]
     Dosage: UNK
  2. CALCIUM [Concomitant]
     Dosage: 500 UNK, UNK
  3. ENBREL [Suspect]
     Indication: RHEUMATOID ARTHRITIS
     Dosage: 50 MG, QWK
  4. PREDNISONE [Concomitant]
     Dosage: 50 MG, UNK
  5. METHOTREXATE [Concomitant]
     Dosage: 2.5 MG, UNK
  6. FISH OIL [Concomitant]
     Dosage: 1000 MG, UNK
  7. LASIX [Concomitant]
     Dosage: 40 MG, QD
  8. VESICARE [Concomitant]
     Dosage: 5 MG, UNK
  9. DILANTIN [Concomitant]
     Dosage: 30 MG, UNK
  10. CARDIZEM CD [Concomitant]
     Dosage: 120 MG, UNK
  11. POTASSIUM [Concomitant]
     Dosage: 75 MG, UNK

REACTIONS (1)
  - OEDEMA PERIPHERAL [None]
